FAERS Safety Report 23393743 (Version 2)
Quarter: 2024Q1

REPORT INFORMATION
  Report Type: Spontaneous
  Country: US (occurrence: US)
  Receive Date: 20240111
  Receipt Date: 20240319
  Transmission Date: 20240409
  Serious: Yes (Other)
  Sender: FDA-Public Use
  Company Number: US-REGENERON PHARMACEUTICALS, INC.-2023-138202

PATIENT
  Age: 68 Year
  Sex: Male

DRUGS (2)
  1. EYLEA [Suspect]
     Active Substance: AFLIBERCEPT
     Indication: Diabetic retinopathy
     Dosage: UNK; FORMULATION: PFS GERRESHEIMER
     Dates: start: 20231024
  2. EYLEA [Suspect]
     Active Substance: AFLIBERCEPT
     Indication: Diabetic retinal oedema

REACTIONS (6)
  - Macular oedema [Unknown]
  - Condition aggravated [Unknown]
  - Uveitis [Unknown]
  - Eye inflammation [Unknown]
  - Anterior chamber cell [Unknown]
  - Vitreal cells [Unknown]

NARRATIVE: CASE EVENT DATE: 20231101
